FAERS Safety Report 6044361-9 (Version None)
Quarter: 2009Q1

REPORT INFORMATION
  Report Type: 
  Country: None (occurrence: None)
  Receive Date: 20090115
  Receipt Date: 20090115
  Transmission Date: 20090719
  Serious: No
  Sender: FDA-Public Use
  Company Number: None

PATIENT
  Sex: Female
  Weight: 50.8029 kg

DRUGS (1)
  1. FLUTICASONE PROPIONATE [Suspect]
     Dosage: 50 MICROGRAMS 2 SPRAYS BID NASAL
     Route: 045

REACTIONS (1)
  - DRUG EFFECT DECREASED [None]
